FAERS Safety Report 6260512-5 (Version None)
Quarter: 2009Q3

REPORT INFORMATION
  Report Type: 
  Country: None (occurrence: None)
  Receive Date: 20090708
  Receipt Date: 20080123
  Transmission Date: 20100115
  Serious: No
  Sender: FDA-Public Use
  Company Number: US-BRISTOL-MYERS SQUIBB COMPANY-14039150

PATIENT
  Age: 68 Year
  Sex: Male
  Weight: 95 kg

DRUGS (3)
  1. SINEMET CR [Suspect]
     Indication: PARKINSON'S DISEASE
     Dosage: 1 DOSAGE FORM = 50/200MG;TAKING FOR ABOUT 9-10YRS
     Route: 048
  2. FINASTERIDE [Concomitant]
  3. FLOMAX [Concomitant]

REACTIONS (1)
  - DRUG INEFFECTIVE [None]
